FAERS Safety Report 6494439-0 (Version None)
Quarter: 2009Q4

REPORT INFORMATION
  Report Type: 
  Country: None (occurrence: None)
  Receive Date: 20091214
  Receipt Date: 20090219
  Transmission Date: 20100525
  Serious: Yes (Hospitalization)
  Sender: FDA-Public Use
  Company Number: US-BRISTOL-MYERS SQUIBB COMPANY-14512628

PATIENT
  Age: 14 Year
  Sex: Female
  Weight: 74 kg

DRUGS (2)
  1. ABILIFY [Suspect]
     Dosage: 1 DOSAGE FORM=1 TAB
     Dates: start: 20090218, end: 20090218
  2. DOXEPIN HCL [Concomitant]

REACTIONS (3)
  - COMA [None]
  - DRUG SCREEN FALSE POSITIVE [None]
  - OVERDOSE [None]
